FAERS Safety Report 8128216-1 (Version None)
Quarter: 2012Q1

REPORT INFORMATION
  Report Type: 
  Country: None (occurrence: None)
  Receive Date: 20120210
  Receipt Date: 20120126
  Transmission Date: 20120608
  Serious: Yes (Death, Hospitalization)
  Sender: FDA-Public Use
  Company Number: US-PFIZER INC-K200901057

PATIENT
  Age: 68 Year
  Sex: Male

DRUGS (5)
  1. ALTACE [Suspect]
     Indication: HYPERTENSION
     Dosage: 10 MG, 1X/DAY
     Route: 048
     Dates: start: 20020101, end: 20090809
  2. PREDNISOLONE [Suspect]
     Indication: DIARRHOEA
     Dosage: 10 MG, 1X/DAY
     Route: 048
     Dates: start: 20060101, end: 20090809
  3. TAMSULOSIN [Concomitant]
     Indication: BENIGN PROSTATIC HYPERPLASIA
     Dosage: 1 DF, UNK
     Route: 048
     Dates: end: 20090601
  4. ACETYLSALICYLIC ACID SRT [Suspect]
     Indication: CORONARY ARTERY DISEASE
     Dosage: 100 MG, 1X/DAY
     Route: 048
     Dates: start: 20010101, end: 20090806
  5. SIMVASTATIN [Suspect]
     Indication: DYSLIPIDAEMIA
     Dosage: 20 MG, 1X/DAY
     Route: 048
     Dates: start: 20090101, end: 20090701

REACTIONS (14)
  - COMA [None]
  - ASTHENIA [None]
  - DECREASED APPETITE [None]
  - SOMNOLENCE [None]
  - PROCEDURAL COMPLICATION [None]
  - JAUNDICE [None]
  - COAGULOPATHY [None]
  - HEPATIC ENCEPHALOPATHY [None]
  - GENERAL PHYSICAL HEALTH DETERIORATION [None]
  - OLIGURIA [None]
  - HEPATIC HAEMORRHAGE [None]
  - DISORIENTATION [None]
  - HEPATIC NECROSIS [None]
  - ACUTE HEPATIC FAILURE [None]
